FAERS Safety Report 25442471 (Version 3)
Quarter: 2025Q3

REPORT INFORMATION
  Report Type: Spontaneous
  Country: US (occurrence: US)
  Receive Date: 20250617
  Receipt Date: 20250813
  Transmission Date: 20251020
  Serious: Yes (Other)
  Sender: ALEXION PHARMACEUTICALS
  Company Number: US-AstraZeneca-CH-00891089AP

PATIENT
  Age: 75 Year
  Sex: Female

DRUGS (2)
  1. TEZSPIRE [Suspect]
     Active Substance: TEZEPELUMAB-EKKO
     Route: 065
  2. TEZSPIRE [Suspect]
     Active Substance: TEZEPELUMAB-EKKO

REACTIONS (6)
  - Pneumonia [Recovering/Resolving]
  - Pleural effusion [Unknown]
  - Dyspnoea [Unknown]
  - Burning sensation [Unknown]
  - Injection site haemorrhage [Unknown]
  - Accidental exposure to product [Recovered/Resolved with Sequelae]

NARRATIVE: CASE EVENT DATE: 20250518
